FAERS Safety Report 10098469 (Version 1)
Quarter: 2014Q2

REPORT INFORMATION
  Report Type: Spontaneous
  Country: IT (occurrence: None)
  Receive Date: 20140421
  Receipt Date: 20140421
  Transmission Date: 20141212
  Serious: Yes (Other)
  Sender: FDA-Public Use
  Company Number: 2292985

PATIENT
  Age: 63 Year
  Sex: Female

DRUGS (3)
  1. PACLITAXEL [Suspect]
     Indication: OVARIAN CANCER RECURRENT
     Route: 042
     Dates: start: 20140326, end: 20140326
  2. (TARGIN) [Concomitant]
  3. ABSTRAL [Concomitant]

REACTIONS (4)
  - Laryngospasm [None]
  - Hypersensitivity [None]
  - Back pain [None]
  - Pain [None]
